FAERS Safety Report 5764874-4 (Version None)
Quarter: 2008Q2

REPORT INFORMATION
  Report Type: 
  Country: None (occurrence: None)
  Receive Date: 20080602
  Receipt Date: 20080205
  Transmission Date: 20081010
  Serious: Yes (Other)
  Sender: FDA-Public Use
  Company Number: WAES 0802USA01095

PATIENT
  Age: 68 Year
  Sex: Female
  Weight: 65.318 kg

DRUGS (6)
  1. EMEND [Suspect]
     Indication: PROPHYLAXIS OF NAUSEA AND VOMITING
     Dosage: 125 MG/1X/PO ; 80 MG/1X/PO
     Route: 048
     Dates: start: 20080130, end: 20080130
  2. EMEND [Suspect]
     Indication: PROPHYLAXIS OF NAUSEA AND VOMITING
     Dosage: 125 MG/1X/PO ; 80 MG/1X/PO
     Route: 048
     Dates: start: 20080131, end: 20080131
  3. ALOXI [Concomitant]
  4. DECADRON [Concomitant]
  5. DECADRON SRC [Concomitant]
  6. ANTINEOPLASTIC (UNSPECIFIED) [Concomitant]

REACTIONS (3)
  - DRUG DOSE OMISSION [None]
  - NAUSEA [None]
  - VOMITING [None]
